FAERS Safety Report 18665694 (Version 3)
Quarter: 2021Q1

REPORT INFORMATION
  Report Type: Spontaneous
  Country: US (occurrence: US)
  Receive Date: 20201226
  Receipt Date: 20210111
  Transmission Date: 20210419
  Serious: No
  Sender: FDA-Public Use
  Company Number: US-JNJFOC-20201239456

PATIENT

DRUGS (1)
  1. IMODIUM MULTI?SYMPTOM RELIEF [Suspect]
     Active Substance: DIMETHICONE\LOPERAMIDE HYDROCHLORIDE
     Indication: DIARRHOEA
     Route: 065

REACTIONS (2)
  - Product packaging issue [Unknown]
  - Inappropriate schedule of product administration [Unknown]
